FAERS Safety Report 10219000 (Version 1)
Quarter: 2014Q2

REPORT INFORMATION
  Report Type: Spontaneous
  Country: US (occurrence: None)
  Receive Date: 20140604
  Receipt Date: 20140604
  Transmission Date: 20141212
  Serious: Yes (Other)
  Sender: FDA-Public Use
  Company Number: None

PATIENT
  Age: 53 Year
  Sex: Male
  Weight: 113.4 kg

DRUGS (1)
  1. METFORMIN [Suspect]
     Indication: BLOOD GLUCOSE INCREASED
     Dosage: 2 PILLS PER DAY TWICE DAILY TAKEN BY MOUTH
     Route: 048
     Dates: start: 20140525, end: 20140601

REACTIONS (5)
  - Malaise [None]
  - Bone pain [None]
  - Lip swelling [None]
  - Swelling face [None]
  - Frequent bowel movements [None]
